FAERS Safety Report 21973595 (Version 1)
Quarter: 2023Q1

REPORT INFORMATION
  Report Type: Spontaneous
  Country: CA (occurrence: CA)
  Receive Date: 20230209
  Receipt Date: 20230209
  Transmission Date: 20230418
  Serious: Yes (Hospitalization, Other)
  Sender: FDA-Public Use
  Company Number: CA-009507513-2005CAN003671

PATIENT
  Age: 83 Year
  Sex: Female

DRUGS (41)
  1. SINGULAIR [Suspect]
     Active Substance: MONTELUKAST SODIUM
     Indication: Product used for unknown indication
     Dosage: UNK, DOSAGE FORM: NOT SPECIFIED
     Route: 065
  2. SINGULAIR [Suspect]
     Active Substance: MONTELUKAST SODIUM
     Dosage: UNK
     Route: 065
  3. FOSAMAX [Suspect]
     Active Substance: ALENDRONATE SODIUM
     Indication: Product used for unknown indication
     Dosage: UNK
     Route: 065
  4. TYLENOL [Suspect]
     Active Substance: ACETAMINOPHEN
     Indication: Product used for unknown indication
     Dosage: UNK; DOSAGE FORM: NOT SPECIFIED
     Route: 065
  5. BISOPROLOL [Suspect]
     Active Substance: BISOPROLOL
     Indication: Product used for unknown indication
     Dosage: 5.0 MILLIGRAM, 1 EVERY 1 DAYS
     Route: 065
  6. BISOPROLOL [Suspect]
     Active Substance: BISOPROLOL
     Dosage: 5.0 MILLIGRAM, 1 EVERY 1 DAYS
     Route: 065
  7. BISOPROLOL [Suspect]
     Active Substance: BISOPROLOL
     Dosage: 5.0 MILLIGRAM, 1 EVERY 1 DAYS
     Route: 065
  8. BISOPROLOL [Suspect]
     Active Substance: BISOPROLOL
     Dosage: 5.0 MILLIGRAM, 1 EVERY 1 DAYS
     Route: 065
  9. DIAZEPAM [Suspect]
     Active Substance: DIAZEPAM
     Indication: Product used for unknown indication
     Dosage: UNK; DOSAGE FORM: NOT SPECIFIED
     Route: 065
  10. ESCITALOPRAM OXALATE [Suspect]
     Active Substance: ESCITALOPRAM OXALATE
     Indication: Product used for unknown indication
     Dosage: 10.0 MILLIGRAM, 1 EVERY 1 DAYS
     Route: 065
  11. FERROUS GLUCONATE [Suspect]
     Active Substance: FERROUS GLUCONATE
     Indication: Product used for unknown indication
     Dosage: 0.125 MILLIGRAM, 1 EVERY 1 DAYS
     Route: 065
  12. LASIX [Suspect]
     Active Substance: FUROSEMIDE
     Indication: Product used for unknown indication
     Dosage: UNK; DOSAGE FORM: NOT SPECIFIED
     Route: 065
  13. MELOXICAM [Suspect]
     Active Substance: MELOXICAM
     Indication: Product used for unknown indication
     Dosage: UNK; DOSAGE FORM: NOT SPECIFIED
     Route: 065
  14. MEPOLIZUMAB [Suspect]
     Active Substance: MEPOLIZUMAB
     Indication: Asthma
     Dosage: 10 MILLIGRAM
     Route: 065
  15. MEPOLIZUMAB [Suspect]
     Active Substance: MEPOLIZUMAB
     Indication: Product used for unknown indication
     Dosage: 100 MILLIGRAM
     Route: 065
  16. OMALIZUMAB [Suspect]
     Active Substance: OMALIZUMAB
     Indication: Product used for unknown indication
     Dosage: UNK
     Route: 065
  17. RABEPRAZOLE SODIUM [Suspect]
     Active Substance: RABEPRAZOLE SODIUM
     Indication: Product used for unknown indication
     Dosage: 10 MILLIGRAM, 1 EVERY 1 DAYS; DOSAGE FORM: TABLET (ENTERIC COATED)
     Route: 048
  18. PREDNISONE [Suspect]
     Active Substance: PREDNISONE
     Indication: Product used for unknown indication
     Dosage: UNK; DOSAGE FORM: NOT SPECIFIED
     Route: 065
  19. PULMICORT TURBUHALER [Suspect]
     Active Substance: BUDESONIDE
     Indication: Product used for unknown indication
     Dosage: UNK, 1 EVERY 1 DAY (DOSAGE FORM: NOT APPLICABLE)
  20. PULMICORT TURBUHALER [Suspect]
     Active Substance: BUDESONIDE
     Indication: Asthma
     Dosage: UNK, DOSAGE FORM: NOT SPECIFIED
     Route: 065
  21. ROSUVASTATIN CALCIUM [Suspect]
     Active Substance: ROSUVASTATIN CALCIUM
     Indication: Product used for unknown indication
     Dosage: UNK
     Route: 048
  22. ROSUVASTATIN CALCIUM [Suspect]
     Active Substance: ROSUVASTATIN CALCIUM
     Dosage: 10.0 MILLIGRAM, 1 EVERY 1 DAYS
     Route: 048
  23. VENTOLIN [Suspect]
     Active Substance: ALBUTEROL SULFATE
     Indication: Product used for unknown indication
     Dosage: UNK; DOSAGE FORM: NOT SPECIFIED
     Route: 065
  24. SPIRONOLACTONE [Suspect]
     Active Substance: SPIRONOLACTONE
     Indication: Product used for unknown indication
     Dosage: UNK
     Route: 048
  25. SYMBICORT [Suspect]
     Active Substance: BUDESONIDE\FORMOTEROL FUMARATE DIHYDRATE
     Indication: Product used for unknown indication
     Dosage: 2 DOSAGE FORMS, 1 EVERY 1 DAYS
     Route: 065
  26. SYNTHROID [Suspect]
     Active Substance: LEVOTHYROXINE SODIUM
     Indication: Product used for unknown indication
     Dosage: UNK; DOSAGE FORM : NOT SPECIFIED
     Route: 065
  27. TIOTROPIUM BROMIDE [Suspect]
     Active Substance: TIOTROPIUM BROMIDE
     Indication: Product used for unknown indication
     Dosage: 2 DOSAGE FORMS, 1 EVERY 1 DAYS (DOSAGE FORM: NOT SPECIFIED)
     Route: 065
  28. TRICHLORMETHIAZIDE [Suspect]
     Active Substance: TRICHLORMETHIAZIDE
     Indication: Product used for unknown indication
     Dosage: 1 EVERY 1 DAYS; DOSAGE FORM: NOT SPECIFIED
     Route: 065
  29. TRICHLORMETHIAZIDE [Suspect]
     Active Substance: TRICHLORMETHIAZIDE
     Dosage: UNK; DOSAGE FORM: NOT SPECIFIED
     Route: 065
  30. VENTOLIN [Suspect]
     Active Substance: ALBUTEROL SULFATE
     Indication: Product used for unknown indication
     Dosage: UNK, DOSAGE FORM: LIQUID INHALATION (5MG/2.5ML)
     Route: 065
  31. VENTOLIN [Suspect]
     Active Substance: ALBUTEROL SULFATE
     Dosage: UNK, DOSAGE FORM: LIQUID INHALATION (1.25MG/2.5ML)
     Route: 065
  32. ACETAMINOPHEN [Suspect]
     Active Substance: ACETAMINOPHEN
     Indication: Product used for unknown indication
     Dosage: UNK, DOSAGE FORM: NOT SPECIFIED
     Route: 065
  33. BUDESONIDE\FORMOTEROL FUMARATE [Suspect]
     Active Substance: BUDESONIDE\FORMOTEROL FUMARATE
     Indication: Product used for unknown indication
     Dosage: 2 DOSAGE FORM, 1 EVERY 1 DAY
  34. BUDESONIDE\FORMOTEROL FUMARATE [Suspect]
     Active Substance: BUDESONIDE\FORMOTEROL FUMARATE
     Dosage: UNK, DOSAGE FORM: NOT SPECIFIED
  35. FUROSEMIDE [Suspect]
     Active Substance: FUROSEMIDE
     Indication: Product used for unknown indication
     Dosage: UNK
     Route: 065
  36. FUROSEMIDE [Suspect]
     Active Substance: FUROSEMIDE
     Dosage: UNK (DOSAGE FORM: NOT SPECIFIED)
     Route: 065
  37. RABEPRAZOLE [Suspect]
     Active Substance: RABEPRAZOLE
     Indication: Product used for unknown indication
     Dosage: 10 MILLIGRAM, 1 EVERY 1 DAY
     Route: 065
  38. ALBUTEROL [Suspect]
     Active Substance: ALBUTEROL
     Indication: Product used for unknown indication
     Dosage: UNK
     Route: 065
  39. ALBUTEROL [Suspect]
     Active Substance: ALBUTEROL
     Dosage: UNK (DOSAGE FORM: NOT SPECIFIED)
     Route: 065
  40. TIOTROPIUM [Suspect]
     Active Substance: TIOTROPIUM
     Indication: Product used for unknown indication
     Dosage: 2 DOSAGE FORM, 1 EVERY 1 DAY
     Route: 065
  41. ALBUTEROL SULFATE [Suspect]
     Active Substance: ALBUTEROL SULFATE
     Indication: Product used for unknown indication
     Dosage: UNK
     Route: 065

REACTIONS (16)
  - Bronchial secretion retention [Unknown]
  - Cough [Unknown]
  - Drug ineffective [Unknown]
  - Dyspnoea [Unknown]
  - Eosinophil count increased [Unknown]
  - Full blood count abnormal [Unknown]
  - Multiple allergies [Unknown]
  - Obstructive airways disorder [Unknown]
  - Pneumonia [Unknown]
  - Pulmonary mass [Unknown]
  - Respiratory tract infection [Unknown]
  - Reversible airways obstruction [Unknown]
  - Sputum culture [Unknown]
  - Sputum culture positive [Unknown]
  - Upper-airway cough syndrome [Unknown]
  - Vital capacity decreased [Unknown]
